FAERS Safety Report 6737700-4 (Version None)
Quarter: 2010Q2

REPORT INFORMATION
  Report Type: 
  Country: None (occurrence: None)
  Receive Date: 20100524
  Receipt Date: 20100511
  Transmission Date: 20101027
  Serious: Yes (Other)
  Sender: FDA-Public Use
  Company Number: PHHY2010US17420

PATIENT
  Sex: Male
  Weight: 97.959 kg

DRUGS (6)
  1. GLEEVEC [Suspect]
     Indication: CHRONIC MYELOID LEUKAEMIA
     Dosage: 400 MG PER DAY
     Route: 048
     Dates: start: 20100218, end: 20100315
  2. DESFERAL [Concomitant]
     Indication: IRON OVERLOAD
     Dosage: WEEKLY
     Route: 058
     Dates: start: 20100118
  3. AMOXICILLIN [Concomitant]
     Indication: SUBACUTE ENDOCARDITIS
     Dosage: UNK
     Route: 048
     Dates: start: 20100205
  4. ZOCOR [Concomitant]
  5. RAMIPRIL [Concomitant]
  6. SPIRONOLACTONE [Concomitant]

REACTIONS (2)
  - DRUG TOXICITY [None]
  - RASH [None]
